FAERS Safety Report 13615212 (Version 1)
Quarter: 2017Q2

REPORT INFORMATION
  Report Type: Report from Study
  Country: IT (occurrence: IT)
  Receive Date: 20170606
  Receipt Date: 20170606
  Transmission Date: 20170830
  Serious: Yes (Other)
  Sender: FDA-Public Use
  Company Number: IT-PFIZER INC-2017238459

PATIENT
  Age: 3 Year
  Sex: Male

DRUGS (10)
  1. HYDROXYUREA. [Suspect]
     Active Substance: HYDROXYUREA
     Indication: T-CELL LYMPHOMA
     Dosage: UNK
  2. L-ASPARAGINASE [Suspect]
     Active Substance: ASPARAGINASE
     Indication: T-CELL LYMPHOMA
     Dosage: UNK
  3. PREDNISONE. [Suspect]
     Active Substance: PREDNISONE
     Indication: T-CELL LYMPHOMA
     Dosage: UNK
  4. METHOTREXATE. [Suspect]
     Active Substance: METHOTREXATE
     Indication: T-CELL LYMPHOMA
     Dosage: UNK
  5. CARMUSTINE [Suspect]
     Active Substance: CARMUSTINE
     Indication: T-CELL LYMPHOMA
     Dosage: UNK
  6. VINCRISTINE SULFATE. [Suspect]
     Active Substance: VINCRISTINE SULFATE
     Indication: T-CELL LYMPHOMA
     Dosage: UNK
  7. CYTARABINE. [Suspect]
     Active Substance: CYTARABINE
     Indication: T-CELL LYMPHOMA
     Dosage: UNK
  8. CYCLOPHOSPHAMIDE. [Suspect]
     Active Substance: CYCLOPHOSPHAMIDE
     Indication: T-CELL LYMPHOMA
     Dosage: UNK
  9. THIOGUANINE [Suspect]
     Active Substance: THIOGUANINE
     Indication: T-CELL LYMPHOMA
     Dosage: UNK
  10. DAUNORUBICIN HCL [Suspect]
     Active Substance: DAUNORUBICIN HYDROCHLORIDE
     Indication: T-CELL LYMPHOMA
     Dosage: UNK

REACTIONS (2)
  - Fibrosarcoma [Recovered/Resolved]
  - Second primary malignancy [Recovered/Resolved]
